FAERS Safety Report 15269357 (Version 1)
Quarter: 2018Q3

REPORT INFORMATION
  Report Type: Report from Study
  Country: PK (occurrence: PK)
  Receive Date: 20180813
  Receipt Date: 20180813
  Transmission Date: 20181010
  Serious: Yes (Life-Threatening)
  Sender: FDA-Public Use
  Company Number: PK-ROCHE-2167471

PATIENT
  Age: 42 Year
  Sex: Female

DRUGS (2)
  1. HERCEPTIN [Suspect]
     Active Substance: TRASTUZUMAB
     Indication: BREAST CANCER
     Route: 042
     Dates: start: 201711, end: 20180621
  2. FEMARA [Concomitant]
     Active Substance: LETROZOLE

REACTIONS (1)
  - Echocardiogram abnormal [Unknown]

NARRATIVE: CASE EVENT DATE: 20180709
